FAERS Safety Report 24240780 (Version 1)
Quarter: 2024Q3

REPORT INFORMATION
  Report Type: Spontaneous
  Country: US (occurrence: US)
  Receive Date: 20240823
  Receipt Date: 20240823
  Transmission Date: 20241017
  Serious: No
  Sender: ROCHE
  Company Number: US-ROCHE-10000059401

PATIENT
  Age: 64 Year
  Sex: Female

DRUGS (2)
  1. ACTEMRA [Suspect]
     Active Substance: TOCILIZUMAB
     Indication: Rheumatoid arthritis
     Route: 058
  2. METHOTREXATE [Concomitant]
     Active Substance: METHOTREXATE

REACTIONS (2)
  - Inflammation [Unknown]
  - Nausea [Unknown]
